FAERS Safety Report 11575678 (Version 1)
Quarter: 2015Q3

REPORT INFORMATION
  Report Type: Spontaneous
  Country: US (occurrence: None)
  Receive Date: 20150929
  Receipt Date: 20150929
  Transmission Date: 20151125
  Serious: Yes (Hospitalization, Other)
  Sender: FDA-Public Use
  Company Number: None

PATIENT
  Age: 64 Year
  Sex: Female
  Weight: 46.72 kg

DRUGS (13)
  1. MAGNESIUM [Concomitant]
     Active Substance: MAGNESIUM
  2. BONE STRENGTHING FORMULA (A TEA) [Concomitant]
  3. AN HERB TEA FOR ANXIETY [Concomitant]
  4. PREDNISONE. [Suspect]
     Active Substance: PREDNISONE
     Indication: CROHN^S DISEASE
     Route: 042
     Dates: start: 20150727, end: 20150918
  5. STONE (A TEA) FOR SPINAL ARTHRITIS [Concomitant]
  6. CAPSULES FOR ALCOHOL DRUG WITHDRAWAL [Concomitant]
  7. CALCIUM [Concomitant]
     Active Substance: CALCIUM
  8. HERBAL RELIEF FORMULA [Concomitant]
  9. K [Concomitant]
  10. AN HERB TO TAKE AWAY THE CIGAR TASTE [Concomitant]
  11. HERB FOR MEMORY LOSS. [Concomitant]
  12. CHRONE^S DISEASE HERB MEDICINE (A TEA) [Concomitant]
  13. LIMBS (AN HERB) FOR SPINAL ARTHRIITS [Concomitant]

REACTIONS (5)
  - Aggression [None]
  - Hallucination, visual [None]
  - Abnormal behaviour [None]
  - Drug prescribing error [None]
  - Schizophrenia [None]

NARRATIVE: CASE EVENT DATE: 20150727
